FAERS Safety Report 7531664-1 (Version None)
Quarter: 2011Q2

REPORT INFORMATION
  Report Type: 
  Country: None (occurrence: None)
  Receive Date: 20110607
  Receipt Date: 20110607
  Transmission Date: 20111010
  Serious: Yes (Other)
  Sender: FDA-Public Use
  Company Number: None

PATIENT
  Age: 37 Year
  Sex: Female
  Weight: 57.6068 kg

DRUGS (1)
  1. PRESERVISION BAUSCH + LOMB [Suspect]
     Dosage: 1 CAPSULE ONCE A DAY BUCCAL
     Route: 002
     Dates: start: 20110301, end: 20110501

REACTIONS (2)
  - PRODUCT ODOUR ABNORMAL [None]
  - NAUSEA [None]
